FAERS Safety Report 8794740 (Version 7)
Quarter: 2014Q2

REPORT INFORMATION
  Report Type: Report from Study
  Country: DE (occurrence: DE)
  Receive Date: 20120917
  Receipt Date: 20140423
  Transmission Date: 20141212
  Serious: Yes (Death, Life-Threatening, Hospitalization)
  Sender: FDA-Public Use
  Company Number: PHHO2012DE013152

PATIENT
  Sex: 0

DRUGS (7)
  1. ACETYLSALICYLIC ACID [Suspect]
     Dates: start: 20030524, end: 20120903
  2. LDE 225 [Suspect]
     Indication: BASAL CELL CARCINOMA
     Dosage: DOSE BLINDED
     Route: 048
     Dates: start: 20120531, end: 20120806
  3. RAMIPRIL [Concomitant]
     Dosage: UNK
     Dates: start: 20030524
  4. TORSEMIDE [Concomitant]
     Dosage: UNK
     Dates: start: 20030524
  5. AMLODIPINE [Concomitant]
     Dosage: UNK
     Dates: start: 20030524
  6. GLIMEPIRIDE [Concomitant]
     Dosage: UNK
     Dates: start: 20030524
  7. LORAZEPAM [Concomitant]
     Dosage: UNK
     Dates: start: 20030524

REACTIONS (5)
  - Nausea [Recovered/Resolved]
  - Vomiting [Recovered/Resolved]
  - Diarrhoea [Recovered/Resolved]
  - Gastritis [Not Recovered/Not Resolved]
  - Death [Fatal]
